FAERS Safety Report 7378521-1 (Version None)
Quarter: 2011Q1

REPORT INFORMATION
  Report Type: 
  Country: None (occurrence: None)
  Receive Date: 20110328
  Receipt Date: 20110314
  Transmission Date: 20110831
  Serious: Yes (Hospitalization)
  Sender: FDA-Public Use
  Company Number: FR-JNJFOC-20110300179

PATIENT
  Age: 39 Year
  Sex: Female
  Weight: 62 kg

DRUGS (10)
  1. REMICADE [Suspect]
     Dosage: 5TH INFUSION
     Route: 042
  2. IMUREL [Concomitant]
     Indication: COLITIS ULCERATIVE
     Route: 048
  3. HYDROCORTISONE HEMISUCCINATE [Concomitant]
     Route: 042
  4. REMICADE [Suspect]
     Route: 042
  5. REMICADE [Suspect]
     Indication: COLITIS ULCERATIVE
     Route: 042
  6. REMICADE [Suspect]
     Route: 042
  7. HYDROCORTISONE HEMISUCCINATE [Concomitant]
     Route: 042
  8. HYDROCORTISONE HEMISUCCINATE [Concomitant]
     Dosage: GIVEN DURING THE FIRST FOUR INFLIXIMAB INFUSIONS
     Route: 042
  9. REMICADE [Suspect]
     Route: 042
  10. HYDROCORTISONE HEMISUCCINATE [Concomitant]
     Indication: PREMEDICATION
     Route: 042

REACTIONS (11)
  - CHEST DISCOMFORT [None]
  - MALAISE [None]
  - PYREXIA [None]
  - ASTHENIA [None]
  - ARTHRALGIA [None]
  - GENERALISED ERYTHEMA [None]
  - COUGH [None]
  - SERUM SICKNESS [None]
  - INFUSION RELATED REACTION [None]
  - HEADACHE [None]
  - INSOMNIA [None]
